FAERS Safety Report 13749426 (Version 1)
Quarter: 2017Q3

REPORT INFORMATION
  Report Type: Spontaneous
  Country: US (occurrence: US)
  Receive Date: 20170713
  Receipt Date: 20170713
  Transmission Date: 20171127
  Serious: Yes (Disabling)
  Sender: FDA-Public Use
  Company Number: None

PATIENT
  Age: 62 Year
  Sex: Female
  Weight: 83.25 kg

DRUGS (7)
  1. ARMOUR THYROID [Concomitant]
     Active Substance: THYROID, PORCINE
  2. UBIQUINOL [Concomitant]
     Active Substance: UBIQUINOL
  3. LEVOFLOXACIN 500 MG TABLET [Suspect]
     Active Substance: LEVOFLOXACIN
     Indication: SINUSITIS
     Dosage: ?          OTHER STRENGTH:MG;QUANTITY:10 TABLET(S);?
     Route: 048
     Dates: start: 20170307, end: 20170310
  4. VITAMIN D3 [Concomitant]
     Active Substance: CHOLECALCIFEROL
  5. MULTI VITAMINS [Concomitant]
     Active Substance: VITAMINS
  6. MAGNESIUM [Concomitant]
     Active Substance: MAGNESIUM
  7. OMEGA THREE OIL [Concomitant]

REACTIONS (10)
  - Gastric disorder [None]
  - Breast pain [None]
  - Insomnia [None]
  - Musculoskeletal pain [None]
  - Loss of personal independence in daily activities [None]
  - Pain in extremity [None]
  - Muscle tightness [None]
  - Back pain [None]
  - Arthralgia [None]
  - Diarrhoea [None]

NARRATIVE: CASE EVENT DATE: 20170307
